FAERS Safety Report 9208965 (Version 1)
Quarter: 2013Q2

REPORT INFORMATION
  Report Type: Spontaneous
  Country: US (occurrence: US)
  Receive Date: 20130404
  Receipt Date: 20130404
  Transmission Date: 20140414
  Serious: Yes (Hospitalization)
  Sender: FDA-Public Use
  Company Number: US-BAYER-USA-2002-001745

PATIENT
  Age: 42 Year
  Sex: Female

DRUGS (2)
  1. BETASERON [Suspect]
     Indication: RELAPSING-REMITTING MULTIPLE SCLEROSIS
     Dosage: 8 MIU, EVERY 2D
     Route: 058
     Dates: start: 1994
  2. CARBAMAZEPINE [Concomitant]
     Indication: MULTIPLE SCLEROSIS
     Dosage: 200 MG, 2 -3 TIMES/DAY
     Route: 048
     Dates: start: 20020506

REACTIONS (4)
  - Multiple sclerosis [Recovered/Resolved]
  - Muscular weakness [Recovered/Resolved]
  - Fall [Recovered/Resolved]
  - Musculoskeletal stiffness [Recovered/Resolved]
